FAERS Safety Report 23293214 (Version 1)
Quarter: 2023Q4

REPORT INFORMATION
  Report Type: Spontaneous
  Country: PH (occurrence: PH)
  Receive Date: 20231213
  Receipt Date: 20231213
  Transmission Date: 20240110
  Serious: Yes (Life-Threatening, Hospitalization, Other)
  Sender: FDA-Public Use
  Company Number: PH-BRISTOL-MYERS SQUIBB COMPANY-2023-179333

PATIENT
  Age: 35 Year
  Sex: Male

DRUGS (1)
  1. DASATINIB [Suspect]
     Active Substance: DASATINIB
     Indication: Chronic myeloid leukaemia
     Dosage: DOSE : 100 MG (2 X 50 MG TABLETS);     FREQ : UNAVAILABLE

REACTIONS (3)
  - Pneumonia [Unknown]
  - Heart rate decreased [Unknown]
  - Pulmonary oedema [Unknown]
